FAERS Safety Report 18452138 (Version 1)
Quarter: 2020Q4

REPORT INFORMATION
  Report Type: Spontaneous
  Country: US (occurrence: US)
  Receive Date: 20201102
  Receipt Date: 20201102
  Transmission Date: 20210114
  Serious: Yes (Hospitalization)
  Sender: FDA-Public Use
  Company Number: US-MYLANLABS-2020M1090853

PATIENT
  Age: 70 Year
  Sex: Male

DRUGS (1)
  1. HYDRALAZINE [Suspect]
     Active Substance: HYDRALAZINE HYDROCHLORIDE
     Indication: HYPERTENSION
     Dosage: 100 MILLIGRAM, TID, THREE TIMES A DAY
     Route: 065

REACTIONS (9)
  - Pneumonia [Unknown]
  - Lupus vasculitis [Recovered/Resolved]
  - Acute kidney injury [Unknown]
  - Eosinophilia [Unknown]
  - Hypocomplementaemia [Unknown]
  - Renal tubular necrosis [Unknown]
  - Anaemia [Unknown]
  - Pulmonary alveolar haemorrhage [Recovered/Resolved]
  - Hypoxia [Unknown]
